FAERS Safety Report 17242987 (Version 3)
Quarter: 2020Q3

REPORT INFORMATION
  Report Type: Spontaneous
  Country: CN (occurrence: CN)
  Receive Date: 20200107
  Receipt Date: 20200311
  Transmission Date: 20201105
  Serious: Yes (Hospitalization)
  Sender: FDA-Public Use
  Company Number: CN-CELGENEUS-CHN-20200100525

PATIENT
  Age: 64 Year
  Sex: Male
  Weight: 85 kg

DRUGS (3)
  1. SERPLULIMAB. [Suspect]
     Active Substance: SERPLULIMAB
     Indication: NON-SMALL CELL LUNG CANCER METASTATIC
     Route: 041
     Dates: start: 20191112, end: 20191112
  2. CARBOPLATIN. [Suspect]
     Active Substance: CARBOPLATIN
     Indication: NON-SMALL CELL LUNG CANCER METASTATIC
     Route: 041
     Dates: start: 20191112, end: 20191112
  3. ABRAXANE [Suspect]
     Active Substance: PACLITAXEL
     Indication: NON-SMALL CELL LUNG CANCER METASTATIC
     Dosage: 202.1 MILLIGRAM
     Route: 041
     Dates: start: 20191112, end: 20191126

REACTIONS (1)
  - Transaminases increased [Recovered/Resolved]

NARRATIVE: CASE EVENT DATE: 20191202
